FAERS Safety Report 8287023-X (Version None)
Quarter: 2012Q2

REPORT INFORMATION
  Report Type: 
  Country: None (occurrence: None)
  Receive Date: 20120416
  Receipt Date: 20120403
  Transmission Date: 20120825
  Serious: No
  Sender: FDA-Public Use
  Company Number: BE-ROCHE-1047091

PATIENT
  Sex: Female

DRUGS (4)
  1. LUCENTIS [Suspect]
     Indication: AGE-RELATED MACULAR DEGENERATION
     Route: 050
     Dates: start: 20100212
  2. CORDARONE [Concomitant]
  3. LUCENTIS [Suspect]
     Route: 050
     Dates: start: 20100802, end: 20100802
  4. DILTIAZEM HCL [Concomitant]

REACTIONS (3)
  - VERTIGO [None]
  - NAUSEA [None]
  - HYPOACUSIS [None]
